FAERS Safety Report 5479567-0 (Version None)
Quarter: 2007Q3

REPORT INFORMATION
  Report Type: 
  Country: None (occurrence: None)
  Receive Date: 20070906
  Receipt Date: 20070709
  Transmission Date: 20080115
  Serious: Yes (Other)
  Sender: FDA-Public Use
  Company Number: HQWYE019012JUL07

PATIENT
  Age: 74 Year
  Sex: Male
  Weight: 81.72 kg

DRUGS (5)
  1. ADVIL [Suspect]
     Indication: PAIN
     Dosage: 2 CAPSULES X 1, ORAL
     Route: 048
     Dates: start: 20070708, end: 20070708
  2. PLAVIX [Concomitant]
  3. VYTORIN [Concomitant]
  4. TOPROL-XL [Concomitant]
  5. PREDNISONE [Concomitant]

REACTIONS (1)
  - ANAPHYLACTIC SHOCK [None]
